FAERS Safety Report 16601582 (Version 6)
Quarter: 2022Q1

REPORT INFORMATION
  Report Type: Other
  Country: CA (occurrence: CA)
  Receive Date: 20190719
  Receipt Date: 20220222
  Transmission Date: 20220423
  Serious: Yes (Congenital Anomaly, Other)
  Sender: FDA-Public Use
  Company Number: CA-APOTEX-2019AP018355

PATIENT
  Age: 6 Month
  Sex: Female
  Weight: 3 kg

DRUGS (58)
  1. DOCUSATE SODIUM [Suspect]
     Active Substance: DOCUSATE SODIUM
     Indication: Maternal exposure timing unspecified
     Dosage: UNK
     Route: 064
  2. DOCUSATE SODIUM [Suspect]
     Active Substance: DOCUSATE SODIUM
     Indication: Foetal exposure during pregnancy
     Dosage: UNK
     Route: 048
  3. DOCUSATE SODIUM [Suspect]
     Active Substance: DOCUSATE SODIUM
     Dosage: UNK
     Route: 063
  4. DOCUSATE SODIUM [Suspect]
     Active Substance: DOCUSATE SODIUM
     Dosage: 90 MILLIGRAM
     Route: 064
  5. DULOXETINE [Suspect]
     Active Substance: DULOXETINE
     Indication: Depression
     Dosage: UNK
     Route: 064
  6. DULOXETINE [Suspect]
     Active Substance: DULOXETINE
     Indication: Foetal exposure during pregnancy
     Dosage: 90 MG, QD
     Route: 064
  7. DULOXETINE [Suspect]
     Active Substance: DULOXETINE
     Indication: Maternal exposure timing unspecified
     Dosage: 90 MG, QD
     Route: 063
  8. DULOXETINE [Suspect]
     Active Substance: DULOXETINE
     Dosage: UNK
     Route: 048
  9. METHYLPHENIDATE [Suspect]
     Active Substance: METHYLPHENIDATE
     Indication: Foetal exposure during pregnancy
     Dosage: UNK
     Route: 064
  10. METHYLPHENIDATE [Suspect]
     Active Substance: METHYLPHENIDATE
     Indication: Maternal exposure timing unspecified
     Dosage: 36 MG, QD
     Route: 064
  11. METHYLPHENIDATE [Suspect]
     Active Substance: METHYLPHENIDATE
     Dosage: 36 MG, QD
     Route: 063
  12. METHYLPHENIDATE [Suspect]
     Active Substance: METHYLPHENIDATE
     Dosage: 36 MILLIGRAM
     Route: 063
  13. METHYLPHENIDATE [Suspect]
     Active Substance: METHYLPHENIDATE
     Dosage: 36 MILLIGRAM
     Route: 064
  14. METHYLPHENIDATE [Suspect]
     Active Substance: METHYLPHENIDATE
     Dosage: UNK
     Route: 048
  15. CYCLOBENZAPRINE [Suspect]
     Active Substance: CYCLOBENZAPRINE
     Indication: Maternal exposure timing unspecified
     Dosage: UNK
     Route: 064
  16. CYCLOBENZAPRINE [Suspect]
     Active Substance: CYCLOBENZAPRINE
     Indication: Foetal exposure during pregnancy
     Dosage: UNK
     Route: 063
  17. CYCLOBENZAPRINE [Suspect]
     Active Substance: CYCLOBENZAPRINE
     Dosage: UNK
     Route: 048
  18. DOMPERIDONE [Suspect]
     Active Substance: DOMPERIDONE
     Indication: Foetal exposure during pregnancy
     Dosage: UNK
     Route: 064
  19. DOMPERIDONE [Suspect]
     Active Substance: DOMPERIDONE
     Indication: Maternal exposure timing unspecified
     Dosage: 20 MG, UNK
     Route: 064
  20. DOMPERIDONE [Suspect]
     Active Substance: DOMPERIDONE
     Indication: Lactation disorder
     Dosage: UNK
     Route: 063
  21. DOMPERIDONE [Suspect]
     Active Substance: DOMPERIDONE
     Dosage: UNK
     Route: 048
  22. FERROUS SULFATE [Suspect]
     Active Substance: FERROUS SULFATE
     Indication: Maternal exposure timing unspecified
     Dosage: UNK
     Route: 064
  23. FERROUS SULFATE [Suspect]
     Active Substance: FERROUS SULFATE
     Indication: Foetal exposure during pregnancy
     Dosage: UNK
     Route: 048
  24. OMEPRAZOLE [Suspect]
     Active Substance: OMEPRAZOLE
     Indication: Maternal exposure timing unspecified
     Dosage: UNK
     Route: 064
  25. OMEPRAZOLE [Suspect]
     Active Substance: OMEPRAZOLE
     Indication: Foetal exposure during pregnancy
     Dosage: UNK
     Route: 063
  26. OMEPRAZOLE [Suspect]
     Active Substance: OMEPRAZOLE
     Dosage: UNK
     Route: 048
  27. INSULIN NOS [Suspect]
     Active Substance: INSULIN NOS
     Indication: Foetal exposure during pregnancy
     Dosage: UNK
     Route: 064
  28. INSULIN NOS [Suspect]
     Active Substance: INSULIN NOS
     Indication: Maternal exposure timing unspecified
  29. DOMPERIDONE [Suspect]
     Active Substance: DOMPERIDONE
     Indication: Foetal exposure during pregnancy
     Dosage: UNK
     Route: 062
  30. DOMPERIDONE [Suspect]
     Active Substance: DOMPERIDONE
     Indication: Maternal exposure timing unspecified
  31. LEVOTHYROXINE [Suspect]
     Active Substance: LEVOTHYROXINE
     Indication: Foetal exposure during pregnancy
     Dosage: UNK
     Route: 064
  32. LEVOTHYROXINE [Suspect]
     Active Substance: LEVOTHYROXINE
     Indication: Maternal exposure timing unspecified
     Dosage: UNK
     Route: 063
  33. LEVOTHYROXINE [Suspect]
     Active Substance: LEVOTHYROXINE
     Dosage: UNK
     Route: 048
  34. URSODIOL [Suspect]
     Active Substance: URSODIOL
     Indication: Foetal exposure during pregnancy
     Dosage: UNK
     Route: 064
  35. URSODIOL [Suspect]
     Active Substance: URSODIOL
     Indication: Maternal exposure timing unspecified
  36. INSULIN NOS [Suspect]
     Active Substance: INSULIN NOS
     Indication: Foetal exposure during pregnancy
     Dosage: UNK
     Route: 066
  37. METHYLPHENIDATE [Suspect]
     Active Substance: METHYLPHENIDATE
     Indication: Foetal exposure during pregnancy
     Dosage: UNK
     Route: 062
  38. URSODIOL [Suspect]
     Active Substance: URSODIOL
     Indication: Foetal exposure during pregnancy
     Dosage: UNK
     Route: 064
  39. URSODIOL [Suspect]
     Active Substance: URSODIOL
     Indication: Maternal exposure timing unspecified
  40. URSO [Suspect]
     Active Substance: URSODIOL
     Indication: Maternal exposure timing unspecified
     Dosage: UNK
     Route: 064
  41. URSO [Suspect]
     Active Substance: URSODIOL
     Indication: Foetal exposure during pregnancy
  42. FERROUS SULFATE ANHYDROUS [Suspect]
     Active Substance: FERROUS SULFATE ANHYDROUS
     Indication: Maternal exposure timing unspecified
     Dosage: UNK
     Route: 064
  43. FERROUS SULFATE ANHYDROUS [Suspect]
     Active Substance: FERROUS SULFATE ANHYDROUS
     Indication: Foetal exposure during pregnancy
     Dosage: UNK
     Route: 063
  44. FERROUS SULFATE ANHYDROUS [Suspect]
     Active Substance: FERROUS SULFATE ANHYDROUS
     Dosage: UNK
     Route: 048
  45. FERROUS SULFATE [Concomitant]
     Active Substance: FERROUS SULFATE
     Indication: Product used for unknown indication
     Dosage: UNK
     Route: 065
  46. DULOXETINE HYDROCHLORIDE [Suspect]
     Active Substance: DULOXETINE HYDROCHLORIDE
     Indication: Foetal exposure during pregnancy
     Dosage: 90 MILLIGRAM
     Route: 063
  47. DULOXETINE HYDROCHLORIDE [Suspect]
     Active Substance: DULOXETINE HYDROCHLORIDE
     Indication: Maternal exposure timing unspecified
     Dosage: 90 MILLIGRAM
     Route: 064
  48. DULOXETINE HYDROCHLORIDE [Suspect]
     Active Substance: DULOXETINE HYDROCHLORIDE
     Indication: Depression
     Dosage: 90 MILLIGRAM, QD
     Route: 064
  49. DULOXETINE HYDROCHLORIDE [Suspect]
     Active Substance: DULOXETINE HYDROCHLORIDE
     Indication: Attention deficit hyperactivity disorder
     Dosage: UNK
     Route: 064
  50. INSULIN NOS [Concomitant]
     Active Substance: INSULIN NOS
     Indication: Product used for unknown indication
     Dosage: UNK
     Route: 065
  51. OMEPRAZOLE [Concomitant]
     Active Substance: OMEPRAZOLE
     Indication: Product used for unknown indication
     Dosage: UNK
     Route: 065
  52. URSODIOL [Concomitant]
     Active Substance: URSODIOL
     Indication: Product used for unknown indication
     Dosage: UNK
     Route: 065
  53. URSODIOL [Concomitant]
     Active Substance: URSODIOL
     Indication: Maternal exposure timing unspecified
     Dosage: UNK
     Route: 064
  54. DULOXETINE HYDROCHLORIDE [Suspect]
     Active Substance: DULOXETINE HYDROCHLORIDE
     Indication: Foetal exposure during pregnancy
     Dosage: 90 MILLIGRAM
     Route: 064
  55. DULOXETINE HYDROCHLORIDE [Suspect]
     Active Substance: DULOXETINE HYDROCHLORIDE
     Indication: Maternal exposure timing unspecified
     Dosage: UNK
     Route: 064
  56. DULOXETINE HYDROCHLORIDE [Suspect]
     Active Substance: DULOXETINE HYDROCHLORIDE
     Indication: Depression
     Dosage: 90 MILLIGRAM, QD
     Route: 064
  57. DULOXETINE HYDROCHLORIDE [Suspect]
     Active Substance: DULOXETINE HYDROCHLORIDE
     Indication: Attention deficit hyperactivity disorder
     Dosage: UNK
     Route: 063
  58. DULOXETINE HYDROCHLORIDE [Suspect]
     Active Substance: DULOXETINE HYDROCHLORIDE
     Dosage: 90 MILLIGRAM
     Route: 063

REACTIONS (11)
  - Exposure via breast milk [Unknown]
  - Exposure during pregnancy [Unknown]
  - Congenital anomaly [Unknown]
  - Foetal exposure during pregnancy [Unknown]
  - Maternal exposure during breast feeding [Unknown]
  - Respiratory tract malformation [Unknown]
  - Pulmonary malformation [Unknown]
  - Congenital cystic lung [Unknown]
  - Pneumonia [Unknown]
  - Lung cyst [Unknown]
  - Somnolence [Unknown]
